FAERS Safety Report 22089719 (Version 1)
Quarter: 2023Q1

REPORT INFORMATION
  Report Type: Spontaneous
  Country: CA (occurrence: CA)
  Receive Date: 20230313
  Receipt Date: 20230313
  Transmission Date: 20230418
  Serious: Yes (Other)
  Sender: FDA-Public Use
  Company Number: CA-SAMSUNG BIOEPIS-SB-2023-06401

PATIENT
  Age: 23 Year
  Sex: Female

DRUGS (5)
  1. INFLIXIMAB [Suspect]
     Active Substance: INFLIXIMAB
     Indication: Hidradenitis
     Route: 042
  2. INFLIXIMAB [Suspect]
     Active Substance: INFLIXIMAB
     Route: 042
  3. INFLIXIMAB [Suspect]
     Active Substance: INFLIXIMAB
     Dosage: UNKNOWN
     Route: 042
  4. COLCHICINE [Concomitant]
     Active Substance: COLCHICINE
     Indication: Product used for unknown indication
     Route: 065
  5. NAPROXEN SODIUM [Concomitant]
     Active Substance: NAPROXEN SODIUM
     Indication: Product used for unknown indication
     Route: 065

REACTIONS (9)
  - Serum ferritin abnormal [Not Recovered/Not Resolved]
  - COVID-19 [Not Recovered/Not Resolved]
  - Condition aggravated [Not Recovered/Not Resolved]
  - Erythema [Not Recovered/Not Resolved]
  - Haemoglobin abnormal [Not Recovered/Not Resolved]
  - Headache [Not Recovered/Not Resolved]
  - Pruritus [Not Recovered/Not Resolved]
  - Off label use [Not Recovered/Not Resolved]
  - Product use in unapproved indication [Unknown]
